FAERS Safety Report 9434539 (Version 3)
Quarter: 2013Q3

REPORT INFORMATION
  Report Type: Spontaneous
  Country: US (occurrence: US)
  Receive Date: 20130801
  Receipt Date: 20130821
  Transmission Date: 20140515
  Serious: No
  Sender: FDA-Public Use
  Company Number: US-PFIZER INC-2013224184

PATIENT
  Age: 60 Year
  Sex: Male
  Weight: 90.7 kg

DRUGS (4)
  1. LYRICA [Suspect]
     Indication: NEURALGIA
     Dosage: 300 MG, 2X/DAY
     Route: 048
     Dates: start: 201306
  2. LYRICA [Suspect]
     Indication: SPINAL CORD INJURY
     Dosage: 600 MG, 1X/DAY
  3. LYRICA [Suspect]
     Indication: NEUROPATHY PERIPHERAL
  4. PAXIL [Concomitant]
     Indication: DEPRESSION
     Dosage: UNK

REACTIONS (6)
  - Pruritus generalised [Recovering/Resolving]
  - Somnolence [Not Recovered/Not Resolved]
  - Fatigue [Not Recovered/Not Resolved]
  - Therapeutic response unexpected [Unknown]
  - Hypoaesthesia [Unknown]
  - Pain in extremity [Unknown]
